FAERS Safety Report 18408937 (Version 1)
Quarter: 2020Q4

REPORT INFORMATION
  Report Type: Spontaneous
  Country: TR (occurrence: TR)
  Receive Date: 20201020
  Receipt Date: 20201020
  Transmission Date: 20210114
  Serious: Yes (Hospitalization)
  Sender: FDA-Public Use
  Company Number: TR-PFIZER INC-2020401805

PATIENT
  Age: 25 Year
  Sex: Female
  Weight: 70 kg

DRUGS (4)
  1. PLAQUENIL [Suspect]
     Active Substance: HYDROXYCHLOROQUINE SULFATE
     Indication: RHEUMATOID ARTHRITIS
     Dosage: 600 MG, 1X/DAY (200MG; 3 DOSES/DAY)
     Route: 048
     Dates: start: 20170605, end: 20171031
  2. MELOX [Suspect]
     Active Substance: MELOXICAM
     Indication: RHEUMATOID ARTHRITIS
     Dosage: 15 MG, 1X/DAY (15 MG 1X1)
     Route: 048
     Dates: start: 20170605, end: 20170622
  3. SALAZOPYRIN [Suspect]
     Active Substance: SULFASALAZINE
     Indication: RHEUMATOID ARTHRITIS
     Dosage: 3000 MG, DAILY (500 MG (6 DOSES IN A DAY))
     Route: 048
     Dates: start: 20170605, end: 20171031
  4. METHOTREXATE (METHOTREXATE SODIUM) [Suspect]
     Active Substance: METHOTREXATE SODIUM
     Indication: RHEUMATOID ARTHRITIS
     Dosage: 15 ML, WEEKLY
     Route: 058

REACTIONS (8)
  - Hallucination [Recovered/Resolved]
  - Dyskinesia [Recovered/Resolved]
  - Mental disorder [Recovered/Resolved]
  - Bipolar I disorder [Recovered/Resolved]
  - Mood altered [Recovered/Resolved]
  - Anger [Recovered/Resolved]
  - Depression [Recovered/Resolved]
  - Insomnia [Recovered/Resolved]

NARRATIVE: CASE EVENT DATE: 20170909
